FAERS Safety Report 17986591 (Version 2)
Quarter: 2020Q4

REPORT INFORMATION
  Report Type: Spontaneous
  Country: US (occurrence: US)
  Receive Date: 20200706
  Receipt Date: 20201030
  Transmission Date: 20210113
  Serious: Yes (Other)
  Sender: FDA-Public Use
  Company Number: US-INCYTE CORPORATION-2020IN006189

PATIENT

DRUGS (1)
  1. JAKAFI [Suspect]
     Active Substance: RUXOLITINIB
     Dosage: 20 MILLIGRAM, BID
     Route: 048

REACTIONS (5)
  - Blister [Unknown]
  - Drug ineffective [Unknown]
  - Pain [Unknown]
  - Osteomyelitis [Unknown]
  - Skin necrosis [Unknown]

NARRATIVE: CASE EVENT DATE: 202004
